FAERS Safety Report 23961522 (Version 1)
Quarter: 2024Q2

REPORT INFORMATION
  Report Type: Spontaneous
  Country: FR (occurrence: FR)
  Receive Date: 20240611
  Receipt Date: 20240611
  Transmission Date: 20240716
  Serious: Yes (Hospitalization)
  Sender: FDA-Public Use
  Company Number: FR-ROCHE-3085821

PATIENT
  Age: 53 Year
  Sex: Female
  Weight: 57.3 kg

DRUGS (27)
  1. CYCLOPHOSPHAMIDE [Suspect]
     Active Substance: CYCLOPHOSPHAMIDE
     Indication: Diffuse large B-cell lymphoma
     Dosage: 1246 MG, Q3W, ON 10/JAN/2022, MOST RECENT DOSE1246 MG OF CYCLOPHOSPHAMIDE PRIOR TO AE
     Route: 042
     Dates: start: 20210928
  2. CYCLOPHOSPHAMIDE [Suspect]
     Active Substance: CYCLOPHOSPHAMIDE
     Dosage: 5 MG, QW
     Route: 042
     Dates: start: 20220415
  3. DOXORUBICIN [Suspect]
     Active Substance: DOXORUBICIN
     Indication: Diffuse large B-cell lymphoma
     Dosage: ON 10/JAN/2022, RECEIVED MOST RECENT DOSE 83.0 MG OF DOXORUBICIN PRIOR TO AE
     Route: 042
     Dates: start: 20210928
  4. PREDNISONE [Suspect]
     Active Substance: PREDNISONE
     Indication: Diffuse large B-cell lymphoma
     Dosage: ON14/JAN/2022, RECEIVED MOST RECENT DOSE 100 MG OF PREDNISONE PRIOR TO AE(QD - EVERY DAY 1-5)
     Route: 048
     Dates: start: 20210927
  5. ACETAMINOPHEN [Concomitant]
     Active Substance: ACETAMINOPHEN
     Dosage: 34000.000IU QD
     Route: 065
     Dates: start: 20211201, end: 20211208
  6. ACETAMINOPHEN [Concomitant]
     Active Substance: ACETAMINOPHEN
     Indication: Product used for unknown indication
     Dosage: UNK
     Route: 065
  7. AMOXICILLIN\CLAVULANATE POTASSIUM [Concomitant]
     Active Substance: AMOXICILLIN\CLAVULANATE POTASSIUM
     Indication: Bronchitis
     Dosage: 1.000G
     Route: 065
     Dates: start: 20220616, end: 20220622
  8. BACTRIM [Concomitant]
     Active Substance: SULFAMETHOXAZOLE\TRIMETHOPRIM
     Indication: Infection prophylaxis
     Dosage: 1.000DF
     Route: 065
     Dates: start: 20210928
  9. DESLORATADINE [Concomitant]
     Active Substance: DESLORATADINE
     Indication: Product used for unknown indication
     Route: 065
  10. DIPHENHYDRAMINE HYDROCHLORIDE [Concomitant]
     Active Substance: DIPHENHYDRAMINE HYDROCHLORIDE
     Indication: Product used for unknown indication
     Dosage: 5.000MG
     Route: 065
     Dates: start: 20211221, end: 20211221
  11. DIPHENHYDRAMINE HYDROCHLORIDE [Concomitant]
     Active Substance: DIPHENHYDRAMINE HYDROCHLORIDE
     Dosage: 5.000MG
     Route: 065
     Dates: start: 20211220, end: 20211220
  12. DIPHENHYDRAMINE HYDROCHLORIDE [Concomitant]
     Active Substance: DIPHENHYDRAMINE HYDROCHLORIDE
     Dosage: 5.000MG
     Route: 065
     Dates: start: 20220110, end: 20220110
  13. DIPHENHYDRAMINE HYDROCHLORIDE [Concomitant]
     Active Substance: DIPHENHYDRAMINE HYDROCHLORIDE
     Dosage: 5.000MG
     Route: 065
     Dates: start: 20220110, end: 20220110
  14. DIPHENHYDRAMINE HYDROCHLORIDE [Concomitant]
     Active Substance: DIPHENHYDRAMINE HYDROCHLORIDE
     Dosage: 5.000MG
     Route: 065
     Dates: start: 2022, end: 2022
  15. EMEND [Concomitant]
     Active Substance: APREPITANT
     Indication: Prophylaxis of nausea and vomiting
     Dosage: 125.000MG
     Route: 065
     Dates: start: 20210928, end: 20220317
  16. EMEND [Concomitant]
     Active Substance: APREPITANT
     Dosage: 80.000MG
     Route: 065
     Dates: start: 20210928, end: 20220317
  17. FILGRASTIM [Concomitant]
     Active Substance: FILGRASTIM
     Indication: Product used for unknown indication
     Dosage: UNK
     Route: 065
  18. INNOHEP [Concomitant]
     Active Substance: TINZAPARIN SODIUM
     Indication: Product used for unknown indication
     Dosage: 11000.000IU QD
     Route: 065
     Dates: start: 20220110
  19. LEUCOVORIN CALCIUM [Concomitant]
     Active Substance: LEUCOVORIN CALCIUM
     Indication: Product used for unknown indication
     Dosage: 25.000MG
     Route: 065
     Dates: start: 20220110
  20. POLATUZUMAB VEDOTIN [Concomitant]
     Active Substance: POLATUZUMAB VEDOTIN
     Indication: Product used for unknown indication
     Route: 065
  21. PRIMPERAN [Concomitant]
     Active Substance: METOCLOPRAMIDE HYDROCHLORIDE
     Indication: Diffuse large B-cell lymphoma
     Dosage: ON 10/JAN/2022, RECEIVED MOST RECENT DOSE 375 MG OF RITUXIMAB DRUG PRIOR TO AE
     Route: 065
     Dates: start: 20210927
  22. RITUXIMAB [Concomitant]
     Active Substance: RITUXIMAB
     Indication: Product used for unknown indication
     Dosage: UNK
     Route: 065
  23. VALACYCLOVIR HYDROCHLORIDE [Concomitant]
     Active Substance: VALACYCLOVIR HYDROCHLORIDE
     Indication: Antiviral prophylaxis
     Dosage: 500.000MG
     Route: 065
     Dates: start: 20210928
  24. VENETOCLAX [Concomitant]
     Active Substance: VENETOCLAX
     Indication: Diffuse large B-cell lymphoma
     Dosage: ON 14/JAN/2022, RECEIVED MOST RECENT DOSE 800MG OF VENETOCLAX PRIOR TO AEQD (EVERY DAY 1 TO 5)
     Route: 065
     Dates: start: 20210930
  25. FILGRASTIM [Concomitant]
     Active Substance: FILGRASTIM
     Indication: Neutropenia
     Dosage: 48000.000IU QD
     Route: 065
     Dates: start: 20220616, end: 20220622
  26. ZOFRAN [Concomitant]
     Active Substance: ONDANSETRON HYDROCHLORIDE
     Indication: Nausea
     Dosage: 8.000MG
     Route: 065
     Dates: start: 20210928
  27. CHOLECALCIFEROL [Concomitant]
     Active Substance: CHOLECALCIFEROL
     Indication: Vitamin D
     Dosage: 50000.000IU
     Route: 065
     Dates: start: 20220415

REACTIONS (1)
  - Osteoporotic fracture [Recovered/Resolved]

NARRATIVE: CASE EVENT DATE: 20220117
